FAERS Safety Report 19394823 (Version 3)
Quarter: 2021Q3

REPORT INFORMATION
  Report Type: Spontaneous
  Country: CZ (occurrence: CZ)
  Receive Date: 20210609
  Receipt Date: 20210928
  Transmission Date: 20211014
  Serious: Yes (Other)
  Sender: FDA-Public Use
  Company Number: CZ-SA-2021SA190851

PATIENT
  Age: 57 Year
  Sex: Female

DRUGS (15)
  1. COMEDROL [Concomitant]
     Indication: ASTHMA
     Route: 048
  2. SPIRIVA [Concomitant]
     Active Substance: TIOTROPIUM BROMIDE MONOHYDRATE
     Indication: CHRONIC RHINOSINUSITIS WITH NASAL POLYPS
     Dosage: 2.5 UG, QD
     Route: 055
  3. AVAMYS [Concomitant]
     Active Substance: FLUTICASONE FUROATE
     Dosage: UNK, QD
     Route: 045
  4. CELEBREX [Concomitant]
     Active Substance: CELECOXIB
     Indication: PAIN
  5. DEXAMETHASONE. [Concomitant]
     Active Substance: DEXAMETHASONE
     Dosage: UNK
     Route: 030
     Dates: start: 201905
  6. BETALOC [METOPROLOL TARTRATE] [Concomitant]
     Active Substance: METOPROLOL TARTRATE
     Indication: HYPERTENSION
     Dosage: 200 MG, QD
  7. PERINDOPRIL INDAPAMID [Concomitant]
     Active Substance: INDAPAMIDE\PERINDOPRIL
     Dosage: 5/1.25 MG 1/2?0?0
  8. DUPIXENT [Suspect]
     Active Substance: DUPILUMAB
     Dosage: 300 MG, QOW
     Route: 058
     Dates: end: 20201002
  9. ZALDIAR [Concomitant]
     Active Substance: ACETAMINOPHEN\TRAMADOL HYDROCHLORIDE
  10. SERETIDE [Concomitant]
     Active Substance: FLUTICASONE PROPIONATE\SALMETEROL XINAFOATE
     Indication: CHRONIC RHINOSINUSITIS WITH NASAL POLYPS
     Dosage: 500/50 ?G 2?0?2
     Route: 055
  11. VENTOLIN HFA [Concomitant]
     Active Substance: ALBUTEROL SULFATE
     Indication: DYSPNOEA
  12. TEZEO HCT [Concomitant]
     Active Substance: HYDROCHLOROTHIAZIDE\TELMISARTAN
     Dosage: 40 / 12.5 1?0?0
  13. DUPIXENT [Suspect]
     Active Substance: DUPILUMAB
     Indication: ASTHMA
     Dosage: 600 MG, 1X
     Route: 058
     Dates: start: 20200824, end: 20200824
  14. XADOS [Concomitant]
     Active Substance: BILASTINE
  15. THEOPHYLLINE [Concomitant]
     Active Substance: THEOPHYLLINE ANHYDROUS
     Dosage: 300 UG, BID

REACTIONS (3)
  - Eosinophilia [Unknown]
  - Asthma [Unknown]
  - Dyspnoea [Unknown]

NARRATIVE: CASE EVENT DATE: 2020
